FAERS Safety Report 4483559-8 (Version None)
Quarter: 2004Q4

REPORT INFORMATION
  Report Type: 
  Country: None (occurrence: None)
  Receive Date: 20041021
  Receipt Date: 20041021
  Transmission Date: 20050328
  Serious: Yes (Hospitalization)
  Sender: FDA-Public Use
  Company Number: None

PATIENT
  Age: 50 Year
  Sex: Female
  Weight: 90.2658 kg

DRUGS (12)
  1. BEXTRA [Suspect]
     Indication: BACK PAIN
     Dosage: 10 MG PO DAILY
     Route: 048
     Dates: start: 20041007, end: 20041012
  2. MAXZIDE [Concomitant]
  3. PREVACID [Concomitant]
  4. REGLAN [Concomitant]
  5. PREMARIN [Concomitant]
  6. CLARINEX [Concomitant]
  7. ACCOLATE [Concomitant]
  8. EFFEXOR [Concomitant]
  9. LEXAPRO [Concomitant]
  10. AMBIEN [Concomitant]
  11. NEURONTIN [Concomitant]
  12. GLUCOPHAGE [Concomitant]

REACTIONS (7)
  - PULMONARY OEDEMA [None]
  - PYREXIA [None]
  - RASH ERYTHEMATOUS [None]
  - RASH GENERALISED [None]
  - RASH PAPULAR [None]
  - RASH PRURITIC [None]
  - TACHYCARDIA [None]
